FAERS Safety Report 7479747-9 (Version None)
Quarter: 2011Q2

REPORT INFORMATION
  Report Type: 
  Country: None (occurrence: None)
  Receive Date: 20110513
  Receipt Date: 20110429
  Transmission Date: 20111010
  Serious: Yes (Other)
  Sender: FDA-Public Use
  Company Number: FR-GENENTECH-318031

PATIENT
  Sex: Male

DRUGS (2)
  1. XOLAIR [Suspect]
     Dosage: 150 MG, Q2W
     Route: 058
     Dates: start: 20090801, end: 20100101
  2. XOLAIR [Suspect]
     Indication: PRODUCT USED FOR UNKNOWN INDICATION
     Dosage: 150 MG, Q2W
     Route: 058
     Dates: start: 20070118, end: 20090101

REACTIONS (2)
  - GENERAL PHYSICAL HEALTH DETERIORATION [None]
  - ALLERGIC GRANULOMATOUS ANGIITIS [None]
